FAERS Safety Report 13576877 (Version 2)
Quarter: 2017Q2

REPORT INFORMATION
  Report Type: Spontaneous
  Country: JP (occurrence: JP)
  Receive Date: 20170524
  Receipt Date: 20170606
  Transmission Date: 20170830
  Serious: Yes (Other)
  Sender: FDA-Public Use
  Company Number: JP-ROCHE-1939210

PATIENT
  Age: 70 Year
  Sex: Male

DRUGS (7)
  1. LUCENTIS [Suspect]
     Active Substance: RANIBIZUMAB
     Indication: POLYPOIDAL CHOROIDAL VASCULOPATHY
     Dosage: IN RIGHT EYE
     Route: 031
     Dates: start: 201601
  2. EYLEA [Concomitant]
     Active Substance: AFLIBERCEPT
     Indication: PRODUCT USED FOR UNKNOWN INDICATION
     Dosage: IN RIGHT EYE
     Route: 065
  3. EYLEA [Concomitant]
     Active Substance: AFLIBERCEPT
     Dosage: IN THE RIGHT EYE
     Route: 065
     Dates: start: 201501
  4. EYLEA [Concomitant]
     Active Substance: AFLIBERCEPT
     Dosage: IN THE RIGHT EYE
     Route: 065
     Dates: start: 201602
  5. EYLEA [Concomitant]
     Active Substance: AFLIBERCEPT
     Dosage: IN THE RIGHT EYE
     Route: 065
     Dates: start: 201511
  6. VISUDYNE [Suspect]
     Active Substance: VERTEPORFIN
     Indication: POLYPOIDAL CHOROIDAL VASCULOPATHY
     Dosage: IN THE RIGHT EYE
     Route: 042
     Dates: start: 20160422
  7. KENACORT-A [Concomitant]
     Active Substance: TRIAMCINOLONE
     Indication: PRODUCT USED FOR UNKNOWN INDICATION
     Route: 065

REACTIONS (1)
  - Visual acuity reduced [Unknown]

NARRATIVE: CASE EVENT DATE: 201602
